FAERS Safety Report 11778363 (Version 2)
Quarter: 2015Q4

REPORT INFORMATION
  Report Type: Spontaneous
  Country: FR (occurrence: FR)
  Receive Date: 20151125
  Receipt Date: 20151204
  Transmission Date: 20160304
  Serious: Yes (Death, Life-Threatening, Hospitalization, Other)
  Sender: FDA-Public Use
  Company Number: FR-ASTRAZENECA-2015SF12072

PATIENT
  Age: 68 Year
  Sex: Female

DRUGS (6)
  1. NATECAL [Concomitant]
     Active Substance: CALCIUM CARBONATE\CHOLECALCIFEROL
     Route: 048
  2. AVLOCARDYL [Concomitant]
     Active Substance: PROPRANOLOL HYDROCHLORIDE
     Route: 048
  3. FASLODEX [Suspect]
     Active Substance: FULVESTRANT
     Indication: BREAST CANCER METASTATIC
     Route: 030
     Dates: start: 20130522, end: 201506
  4. XGEVA [Suspect]
     Active Substance: DENOSUMAB
     Indication: BREAST CANCER METASTATIC
     Route: 058
     Dates: start: 20130522, end: 201506
  5. DICYNONE [Suspect]
     Active Substance: ETHAMSYLATE
     Indication: RECTAL HAEMORRHAGE
     Route: 048
     Dates: start: 20150612, end: 20150614
  6. VITAMIN D3 [Concomitant]
     Active Substance: CHOLECALCIFEROL
     Route: 048

REACTIONS (10)
  - Acute hepatic failure [Fatal]
  - General physical health deterioration [Not Recovered/Not Resolved]
  - Rectal haemorrhage [Unknown]
  - Antinuclear antibody positive [Unknown]
  - Multi-organ failure [Fatal]
  - Acute kidney injury [Unknown]
  - Lung infection [Unknown]
  - Escherichia test positive [Unknown]
  - Septic shock [Unknown]
  - Hepatitis [Unknown]

NARRATIVE: CASE EVENT DATE: 201506
